FAERS Safety Report 8381414-4 (Version None)
Quarter: 2012Q2

REPORT INFORMATION
  Report Type: 
  Country: None (occurrence: None)
  Receive Date: 20120523
  Receipt Date: 20110302
  Transmission Date: 20120825
  Serious: Yes (Hospitalization)
  Sender: FDA-Public Use
  Company Number: ES-ROCHE-752945

PATIENT
  Sex: Male
  Weight: 75 kg

DRUGS (5)
  1. AVASTIN [Suspect]
     Indication: COLORECTAL CANCER
     Dosage: DOSAGE FORM : INFUSION, DATE OF LAST DOSE PRIOR TO SAE : 22 DECEMBER 2010,PERMANENTLY DISCONTINUED
     Route: 042
     Dates: start: 20101222, end: 20110204
  2. OXALIPLATIN [Suspect]
     Indication: COLORECTAL CANCER
     Dosage: DOSAGE FORM: INFUSION, DATE OF LAST DOSE PRIOR TO SAE:22DEC2010,PERMANENTLY DISCONTINUED
     Route: 042
     Dates: start: 20101222, end: 20110204
  3. MEROPENEM [Concomitant]
     Dates: start: 20110101, end: 20110102
  4. XELODA [Suspect]
     Indication: COLORECTAL CANCER
     Dosage: DOSING FREQUENCY:DAILY FOR 14 DAYS, DATE OF LAST DOSE PRIOR TO SAE:UNKNOWN,PERMANENTLY DISCONTINUED
     Route: 048
     Dates: start: 20101222, end: 20110204
  5. CLINDAMICINA [Concomitant]
     Dates: start: 20110101, end: 20110102

REACTIONS (2)
  - INTESTINAL OBSTRUCTION [None]
  - GASTROINTESTINAL TOXICITY [None]
